FAERS Safety Report 16572528 (Version 1)
Quarter: 2019Q3

REPORT INFORMATION
  Report Type: Spontaneous
  Country: DK (occurrence: DK)
  Receive Date: 20190715
  Receipt Date: 20190715
  Transmission Date: 20191004
  Serious: Yes (Other)
  Sender: FDA-Public Use
  Company Number: DK-MYLANLABS-2019M1064821

PATIENT
  Age: 45 Year
  Sex: Female

DRUGS (4)
  1. CYCLOPHOSPHAMIDE. [Suspect]
     Active Substance: CYCLOPHOSPHAMIDE
     Indication: BREAST CANCER STAGE II
     Dosage: DOSIS: 1: 1250MG, 2: IKKE NOTERET 3.: 1100MG STYRKE: UKENDT
     Route: 065
     Dates: start: 20140205, end: 20140325
  2. TAMOXIFEN [Suspect]
     Active Substance: TAMOXIFEN
     Indication: BREAST CANCER STAGE II
     Dosage: STYRKE: UKENDT DOSIS: UKENDT
     Route: 065
     Dates: start: 20140618, end: 20180208
  3. DOCETAXEL. [Suspect]
     Active Substance: DOCETAXEL
     Indication: BREAST CANCER STAGE II
     Dosage: DOSIS: 160MG VED HVER BEHANDLING STYRKE: UKENDT.
     Route: 065
     Dates: start: 20140416
  4. EPIRUBICIN [Suspect]
     Active Substance: EPIRUBICIN
     Indication: BREAST CANCER STAGE II
     Dosage: DOSIS: 1: 190MG, 2: IKKE NOTERET, 3:130MG STYRKE: UKENDT.
     Route: 065
     Dates: start: 20140205, end: 20140325

REACTIONS (23)
  - Blood pressure fluctuation [Not Recovered/Not Resolved]
  - Hypertension [Unknown]
  - Sensory disturbance [Not Recovered/Not Resolved]
  - Arthralgia [Unknown]
  - Osteoarthritis [Unknown]
  - Osteoporosis [Not Recovered/Not Resolved]
  - Pain [Not Recovered/Not Resolved]
  - Tooth infection [Unknown]
  - Tooth demineralisation [Not Recovered/Not Resolved]
  - Dry mouth [Unknown]
  - Muscle spasms [Not Recovered/Not Resolved]
  - Peripheral swelling [Not Recovered/Not Resolved]
  - Pain in extremity [Unknown]
  - Toothache [Unknown]
  - Lymphoedema [Not Recovered/Not Resolved]
  - Oral candidiasis [Unknown]
  - Vulvovaginal candidiasis [Unknown]
  - Eye pain [Unknown]
  - Diabetes mellitus [Not Recovered/Not Resolved]
  - Headache [Unknown]
  - Nipple pain [Unknown]
  - Myalgia [Unknown]
  - Fatigue [Not Recovered/Not Resolved]

NARRATIVE: CASE EVENT DATE: 2014
